FAERS Safety Report 21411304 (Version 1)
Quarter: 2022Q4

REPORT INFORMATION
  Report Type: Spontaneous
  Country: CN (occurrence: CN)
  Receive Date: 20221005
  Receipt Date: 20221005
  Transmission Date: 20230113
  Serious: Yes (Other)
  Sender: FDA-Public Use
  Company Number: None

PATIENT
  Age: 54 Year
  Sex: Female
  Weight: 58 kg

DRUGS (4)
  1. CYCLOPHOSPHAMIDE [Suspect]
     Active Substance: CYCLOPHOSPHAMIDE
     Indication: Breast cancer female
     Dosage: AT 9:28, 800 MG, QD, DILUTED WITH 0.9% SODIUM CHLORIDE INJECTION 50 ML
     Route: 041
     Dates: start: 20220908, end: 20220908
  2. SODIUM CHLORIDE [Suspect]
     Active Substance: SODIUM CHLORIDE
     Indication: Medication dilution
     Dosage: AT 9:28, 50 ML, QD, DILUTED IN CYCLOPHOSPHAMIDE (800 MG)
     Route: 041
     Dates: start: 20220908, end: 20220908
  3. SODIUM CHLORIDE [Suspect]
     Active Substance: SODIUM CHLORIDE
     Dosage: 100 ML, QD, DILUTED WITH EPIRUBICIN HYDROCLORIDE (60 MG), START TIME- AFTER 9:51 ON 08-SEP-2022, AND
     Route: 041
     Dates: start: 20220908, end: 20220909
  4. EPIRUBICIN HYDROCHLORIDE [Suspect]
     Active Substance: EPIRUBICIN HYDROCHLORIDE
     Indication: Breast cancer female
     Dosage: 60 MG, QD, DILUTED WITH 0.9% SODIUM CHLORIDE (100ML), START TIME- AFTER 9:51 ON 08-SEP-2022, AND 10:
     Route: 041
     Dates: start: 20220908, end: 20220909

REACTIONS (3)
  - Myelosuppression [Recovering/Resolving]
  - White blood cell count decreased [Recovering/Resolving]
  - Asthenia [Recovering/Resolving]

NARRATIVE: CASE EVENT DATE: 20220916
